FAERS Safety Report 7924793-1 (Version None)
Quarter: 2011Q4

REPORT INFORMATION
  Report Type: 
  Country: None (occurrence: None)
  Receive Date: 20111118
  Receipt Date: 20110328
  Transmission Date: 20120403
  Serious: No
  Sender: FDA-Public Use
  Company Number: US-AMGEN-USASP2011016432

PATIENT
  Age: 42 Year
  Sex: Male

DRUGS (1)
  1. ENBREL [Suspect]
     Indication: ANKYLOSING SPONDYLITIS
     Dosage: 50 MG, QWK
     Dates: start: 20110312

REACTIONS (6)
  - DRY THROAT [None]
  - SKIN HAEMORRHAGE [None]
  - SKIN EXFOLIATION [None]
  - RASH PAPULAR [None]
  - DRY MOUTH [None]
  - DEHYDRATION [None]
